FAERS Safety Report 4481024-5 (Version None)
Quarter: 2004Q4

REPORT INFORMATION
  Report Type: 
  Country: None (occurrence: None)
  Receive Date: 20041020
  Receipt Date: 20041020
  Transmission Date: 20050328
  Serious: Yes (Hospitalization)
  Sender: FDA-Public Use
  Company Number: None

PATIENT
  Age: 78 Year
  Sex: Male
  Weight: 100 kg

DRUGS (6)
  1. PRAMIPEXOLE [Suspect]
     Indication: RESTLESS LEGS SYNDROME
     Dosage: 0.125 MG PO QHS AND QPM PRN
     Route: 048
     Dates: start: 20040422, end: 20040622
  2. SERTRALINE HCL [Concomitant]
  3. SIMVASTATIN [Concomitant]
  4. TAMSULOSIN [Concomitant]
  5. METOPROLOL SUCCINATE [Concomitant]
  6. ZOLPIDIN [Concomitant]

REACTIONS (1)
  - ACUTE MYELOID LEUKAEMIA [None]
